FAERS Safety Report 16271568 (Version 1)
Quarter: 2019Q2

REPORT INFORMATION
  Report Type: Spontaneous
  Country: AT (occurrence: AT)
  Receive Date: 20190503
  Receipt Date: 20190503
  Transmission Date: 20190711
  Serious: Yes (Hospitalization)
  Sender: FDA-Public Use
  Company Number: AT-AMREGENT-20190808

PATIENT
  Age: 38 Year
  Sex: Female

DRUGS (1)
  1. FERINJECT [Suspect]
     Active Substance: FERRIC CARBOXYMALTOSE
     Dosage: 1000 MG
     Route: 041
     Dates: start: 20190325, end: 20190325

REACTIONS (5)
  - Anxiety [Recovered/Resolved]
  - Dyspnoea [Recovered/Resolved]
  - Hyperventilation [Recovered/Resolved]
  - Pruritus generalised [Recovered/Resolved]
  - Urticaria [Recovered/Resolved]

NARRATIVE: CASE EVENT DATE: 20190325
